FAERS Safety Report 16003714 (Version 1)
Quarter: 2019Q1

REPORT INFORMATION
  Report Type: Spontaneous
  Country: CA (occurrence: CA)
  Receive Date: 20190226
  Receipt Date: 20190226
  Transmission Date: 20190418
  Serious: Yes (Other)
  Sender: FDA-Public Use
  Company Number: CA-BIOVITRUM-2019CA0232

PATIENT
  Sex: Female

DRUGS (9)
  1. APO-CYCLOSPORINE [Suspect]
     Active Substance: CYCLOSPORINE
  2. KINERET [Suspect]
     Active Substance: ANAKINRA
     Indication: JUVENILE IDIOPATHIC ARTHRITIS
     Route: 058
  3. TACROLIMUS. [Suspect]
     Active Substance: TACROLIMUS
  4. REMICADE [Suspect]
     Active Substance: INFLIXIMAB
     Indication: JUVENILE IDIOPATHIC ARTHRITIS
     Route: 042
  5. ETOPOSIDE. [Suspect]
     Active Substance: ETOPOSIDE
  6. METHOTREXATE SODIUM. [Suspect]
     Active Substance: METHOTREXATE SODIUM
  7. THALOMID [Suspect]
     Active Substance: THALIDOMIDE
  8. CYCLOSPORINE. [Suspect]
     Active Substance: CYCLOSPORINE
  9. ENBREL [Suspect]
     Active Substance: ETANERCEPT

REACTIONS (1)
  - Hepatosplenic T-cell lymphoma [Unknown]
